FAERS Safety Report 5196175-X (Version None)
Quarter: 2007Q1

REPORT INFORMATION
  Report Type: 
  Country: None (occurrence: None)
  Receive Date: 20070102
  Receipt Date: 20061221
  Transmission Date: 20070707
  Serious: Yes (Other)
  Sender: FDA-Public Use
  Company Number: US-BRISTOL-MYERS SQUIBB COMPANY-13620075

PATIENT
  Sex: Male
  Weight: 109 kg

DRUGS (4)
  1. ORENCIA [Suspect]
     Route: 042
  2. PRAVACHOL [Concomitant]
  3. PREDNISONE [Concomitant]
  4. MINOCYCLINE HCL [Concomitant]

REACTIONS (2)
  - DEHYDRATION [None]
  - DIARRHOEA [None]
